FAERS Safety Report 25913048 (Version 1)
Quarter: 2025Q4

REPORT INFORMATION
  Report Type: Spontaneous
  Country: JP (occurrence: JP)
  Receive Date: 20251013
  Receipt Date: 20251013
  Transmission Date: 20260118
  Serious: Yes (Hospitalization, Other)
  Sender: CATALYST PHARMA
  Company Number: JP-CATALYSTPHARMACEUTICALPARTNERS-JP-CATA-25-01522

PATIENT
  Age: 11 Year
  Sex: Female

DRUGS (9)
  1. PERAMPANEL [Suspect]
     Active Substance: PERAMPANEL
     Indication: Lennox-Gastaut syndrome
     Dosage: 8 MILLIGRAM(S), 1 IN 1 DAY
     Route: 048
  2. PERAMPANEL [Suspect]
     Active Substance: PERAMPANEL
     Dosage: 4 MILLIGRAM(S), 1 IN 1 DAY
     Route: 048
  3. FENFLURAMINE HYDROCHLORIDE [Interacting]
     Active Substance: FENFLURAMINE HYDROCHLORIDE
     Indication: Lennox-Gastaut syndrome
     Dosage: 15.4 MILLIGRAM(S), 1 IN 1 DAY
     Route: 065
  4. FENFLURAMINE HYDROCHLORIDE [Interacting]
     Active Substance: FENFLURAMINE HYDROCHLORIDE
     Dosage: 19.8 MILLIGRAM(S), 1 IN 1 DAY
     Route: 065
  5. RAMELTEON [Interacting]
     Active Substance: RAMELTEON
     Indication: Product used for unknown indication
     Dosage: DOSE AND FREQUENCY UNKNOWN
     Route: 065
  6. SUVOREXANT [Interacting]
     Active Substance: SUVOREXANT
     Indication: Product used for unknown indication
     Dosage: DOSE AND FREQUENCY UNKNOWN
     Route: 065
  7. RISPERIDONE [Interacting]
     Active Substance: RISPERIDONE
     Indication: Product used for unknown indication
     Dosage: DOSE AND FREQUENCY UNKNOWN
     Route: 065
  8. LAMOTRIGINE [Concomitant]
     Active Substance: LAMOTRIGINE
     Indication: Lennox-Gastaut syndrome
     Dosage: 200 MILLIGRAM(S), 1 IN 1 DAY
     Route: 065
  9. NITRAZEPAM [Concomitant]
     Active Substance: NITRAZEPAM
     Indication: Product used for unknown indication
     Dosage: DOSE AND FREQUENCY UNKNOWN
     Route: 065

REACTIONS (5)
  - Metapneumovirus pneumonia [Unknown]
  - Altered state of consciousness [Recovering/Resolving]
  - Anticonvulsant drug level increased [Unknown]
  - Drug interaction [Unknown]
  - Off label use [Unknown]
